FAERS Safety Report 4829872-3 (Version None)
Quarter: 2005Q4

REPORT INFORMATION
  Report Type: 
  Country: None (occurrence: None)
  Receive Date: 20051117
  Receipt Date: 20051107
  Transmission Date: 20060501
  Serious: Yes (Hospitalization)
  Sender: FDA-Public Use
  Company Number: JP-ABBOTT-05P-087-0316732-00

PATIENT
  Age: 24 Month
  Sex: Male
  Weight: 11.4 kg

DRUGS (5)
  1. CLARITH DRY SYRUP [Suspect]
     Indication: OTITIS MEDIA
     Route: 048
     Dates: start: 20050302, end: 20050303
  2. OSELTAMIVIR PHOSPHATE [Suspect]
     Indication: INFLUENZA
     Route: 048
     Dates: start: 20050302, end: 20050303
  3. OSELTAMIVIR PHOSPHATE [Suspect]
     Route: 048
     Dates: start: 20050223, end: 20050226
  4. KETOTIFEN FUMARATE [Concomitant]
     Indication: OTITIS MEDIA
     Route: 048
  5. CARBOCISTEINE [Concomitant]
     Indication: OTITIS MEDIA
     Route: 048

REACTIONS (3)
  - HYPOTHERMIA [None]
  - PYREXIA [None]
  - RASH [None]
